FAERS Safety Report 23118095 (Version 3)
Quarter: 2024Q1

REPORT INFORMATION
  Report Type: Spontaneous
  Country: JP (occurrence: JP)
  Receive Date: 20231027
  Receipt Date: 20240104
  Transmission Date: 20240409
  Serious: Yes (Other)
  Sender: FDA-Public Use
  Company Number: JP-PFIZER INC-PV202300176613

PATIENT
  Age: 89 Year
  Sex: Male

DRUGS (1)
  1. MEROPENEM [Suspect]
     Active Substance: MEROPENEM
     Indication: Pneumonia
     Dosage: 0.5 G, BID
     Route: 041
     Dates: start: 20231006, end: 20231010

REACTIONS (6)
  - Urticaria [Recovered/Resolved]
  - Pruritus [Unknown]
  - Rash erythematous [Unknown]
  - Arrhythmia [Unknown]
  - Blood pressure decreased [Unknown]
  - Off label use [Unknown]

NARRATIVE: CASE EVENT DATE: 20231006
